FAERS Safety Report 13698772 (Version 2)
Quarter: 2017Q3

REPORT INFORMATION
  Report Type: Spontaneous
  Country: FR (occurrence: FR)
  Receive Date: 20170628
  Receipt Date: 20170714
  Transmission Date: 20171127
  Serious: Yes (Hospitalization)
  Sender: FDA-Public Use
  Company Number: FR-PFIZER INC-2017274452

PATIENT
  Age: 32 Year
  Sex: Male

DRUGS (5)
  1. DIAZEPAM. [Suspect]
     Active Substance: DIAZEPAM
     Dosage: 40 MG IN 4 INTAKES
     Route: 048
  2. GAMMA HYDROXYBUTYRATE [Suspect]
     Active Substance: 4-HYDROXYBUTANOIC ACID
     Dosage: UNK
     Dates: end: 201705
  3. XANAX [Suspect]
     Active Substance: ALPRAZOLAM
     Route: 048
  4. COCAINE [Suspect]
     Active Substance: COCAINE
     Dosage: ONCE WEEKLY
  5. CANNABIS [Suspect]
     Active Substance: CANNABIS SATIVA SUBSP. INDICA TOP
     Dosage: 3 TO 4 DAILY
     Route: 055
     Dates: start: 2000

REACTIONS (6)
  - Substance abuser [Recovering/Resolving]
  - Drug abuser [Recovering/Resolving]
  - Drug dependence [Recovering/Resolving]
  - Drug abuse [Recovering/Resolving]
  - Condition aggravated [Recovering/Resolving]
  - Intentional product misuse [Recovering/Resolving]
